FAERS Safety Report 5357718-6 (Version None)
Quarter: 2007Q2

REPORT INFORMATION
  Report Type: 
  Country: None (occurrence: None)
  Receive Date: 20070614
  Receipt Date: 20070605
  Transmission Date: 20071010
  Serious: Yes (Other)
  Sender: FDA-Public Use
  Company Number: DE-PFIZER INC-2007029554

PATIENT
  Sex: Male

DRUGS (2)
  1. CARDULAR [Suspect]
     Indication: HYPERTENSION
     Route: 048
  2. ANTIHYPERTENSIVES [Concomitant]

REACTIONS (2)
  - MACULOPATHY [None]
  - WEIGHT INCREASED [None]
